FAERS Safety Report 4763975-7 (Version None)
Quarter: 2005Q3

REPORT INFORMATION
  Report Type: 
  Country: None (occurrence: None)
  Receive Date: 20050906
  Receipt Date: 20050610
  Transmission Date: 20060218
  Serious: No
  Sender: FDA-Public Use
  Company Number: 2005-BP-09711BP

PATIENT
  Age: 72 Year
  Sex: Female

DRUGS (2)
  1. SPIRIVA [Suspect]
     Indication: CHRONIC OBSTRUCTIVE PULMONARY DISEASE
     Dosage: 18 MCG (18 MCG), IH
     Route: 055
     Dates: start: 20050301
  2. SPIRIVA [Suspect]

REACTIONS (5)
  - DRY MOUTH [None]
  - DYSGEUSIA [None]
  - DYSURIA [None]
  - URINARY RETENTION [None]
  - WEIGHT DECREASED [None]
